FAERS Safety Report 13451095 (Version 2)
Quarter: 2017Q2

REPORT INFORMATION
  Report Type: Spontaneous
  Country: US (occurrence: US)
  Receive Date: 20170418
  Receipt Date: 20170518
  Transmission Date: 20170830
  Serious: Yes (Other)
  Sender: FDA-Public Use
  Company Number: US-SHIRE-US201708041

PATIENT
  Age: 41 Year
  Sex: Male

DRUGS (7)
  1. KALBITOR [Suspect]
     Active Substance: ECALLANTIDE
     Indication: HEREDITARY ANGIOEDEMA
     Dosage: 30 MG, AS REQ^D
     Route: 058
     Dates: start: 2016
  2. CINRYZE [Suspect]
     Active Substance: HUMAN C1-ESTERASE INHIBITOR
     Indication: PROPHYLAXIS
  3. MULTIVITAMIN                       /00097801/ [Concomitant]
     Active Substance: VITAMINS
     Indication: PRODUCT USED FOR UNKNOWN INDICATION
     Dosage: UNK, UNKNOWN
     Route: 065
  4. KALBITOR [Suspect]
     Active Substance: ECALLANTIDE
     Dosage: 30 MG, ONE DOSE
     Route: 058
     Dates: start: 20170314, end: 20170314
  5. TYLENOL [Concomitant]
     Active Substance: ACETAMINOPHEN
     Indication: PYREXIA
  6. CINRYZE [Suspect]
     Active Substance: HUMAN C1-ESTERASE INHIBITOR
     Indication: HEREDITARY ANGIOEDEMA
     Dosage: UNK, UNKNOWN
     Route: 042
  7. TYLENOL [Concomitant]
     Active Substance: ACETAMINOPHEN
     Indication: PAIN
     Dosage: 650 MG, AS REQ^D
     Route: 048

REACTIONS (8)
  - Rash [Unknown]
  - Muscle spasms [Unknown]
  - Hot flush [Unknown]
  - Hereditary angioedema [Recovered/Resolved]
  - Renal failure [Unknown]
  - Malaise [Unknown]
  - Muscle tightness [Unknown]
  - Product use issue [Unknown]

NARRATIVE: CASE EVENT DATE: 201703
